FAERS Safety Report 9587680 (Version 1)
Quarter: 2013Q4

REPORT INFORMATION
  Report Type: Spontaneous
  Country: TH (occurrence: TH)
  Receive Date: 20131003
  Receipt Date: 20131003
  Transmission Date: 20140711
  Serious: Yes (Other)
  Sender: FDA-Public Use
  Company Number: TH-PFIZER INC-2013280086

PATIENT
  Age: 50 Year
  Sex: 0

DRUGS (1)
  1. ZITHROMAX [Suspect]
     Dosage: UNK
     Route: 042

REACTIONS (1)
  - Cardiac arrest [Unknown]
